FAERS Safety Report 9633225 (Version 1)
Quarter: 2013Q4

REPORT INFORMATION
  Report Type: Spontaneous
  Country: US (occurrence: None)
  Receive Date: 20131018
  Receipt Date: 20131018
  Transmission Date: 20140711
  Serious: Yes (Disabling, Other)
  Sender: FDA-Public Use
  Company Number: None

PATIENT
  Age: 37 Year
  Sex: Female
  Weight: 58.97 kg

DRUGS (2)
  1. HYDROCODONE/IBUPROFEN [Suspect]
     Indication: FIBROMYALGIA
     Route: 048
     Dates: start: 20130606, end: 20131017
  2. HYDROCODONE/IBUPROFEN [Suspect]
     Indication: CHRONIC FATIGUE SYNDROME
     Route: 048
     Dates: start: 20130606, end: 20131017

REACTIONS (2)
  - Drug ineffective [None]
  - Product counterfeit [None]
